FAERS Safety Report 11555875 (Version 1)
Quarter: 2015Q3

REPORT INFORMATION
  Report Type: Spontaneous
  Country: DE (occurrence: DE)
  Receive Date: 20150925
  Receipt Date: 20150925
  Transmission Date: 20151125
  Serious: Yes (Hospitalization)
  Sender: FDA-Public Use
  Company Number: DE-ASTRAZENECA-2015SE77319

PATIENT
  Sex: Female
  Weight: 80 kg

DRUGS (1)
  1. BYDUREON [Suspect]
     Active Substance: EXENATIDE
     Route: 058

REACTIONS (4)
  - Headache [Recovered/Resolved]
  - Hemianopia [Recovered/Resolved]
  - Paranoia [Recovered/Resolved]
  - Depression [Recovered/Resolved]
